FAERS Safety Report 17236574 (Version 2)
Quarter: 2020Q1

REPORT INFORMATION
  Report Type: Spontaneous
  Country: US (occurrence: US)
  Receive Date: 20200106
  Receipt Date: 20200311
  Transmission Date: 20200409
  Serious: Yes (Hospitalization)
  Sender: FDA-Public Use
  Company Number: NVSC2019US084363

PATIENT
  Age: 1 Month
  Sex: Female
  Weight: 3.86 kg

DRUGS (1)
  1. ZOLGENSMA [Suspect]
     Active Substance: ONASEMNOGENE ABEPARVOVEC-XIOI
     Indication: SPINAL MUSCULAR ATROPHY
     Dosage: UNK, ONCE/SINGLE (3.6.4.0 KG/WT, 22 ML)
     Route: 042
     Dates: start: 20191223, end: 20191223

REACTIONS (3)
  - Selective eating disorder [Recovered/Resolved]
  - Dysphagia [Recovered/Resolved]
  - Troponin I increased [Unknown]

NARRATIVE: CASE EVENT DATE: 20191230
